FAERS Safety Report 10055154 (Version 2)
Quarter: 2014Q2

REPORT INFORMATION
  Report Type: Spontaneous
  Country: US (occurrence: US)
  Receive Date: 20140402
  Receipt Date: 20140402
  Transmission Date: 20141212
  Serious: Yes (Other)
  Sender: FDA-Public Use
  Company Number: PHEH2014US005770

PATIENT
  Sex: Female

DRUGS (22)
  1. EXELON PATCH [Suspect]
     Dosage: 13.3 MG, UNK
     Route: 062
     Dates: start: 20140320
  2. TRIAMTERENE [Concomitant]
     Dosage: UNK UKN, UNK
  3. LISINOPRIL [Concomitant]
     Dosage: UNK UKN, UNK
  4. LEVOTHYROXINE [Concomitant]
     Dosage: UNK UKN, UNK
  5. LOVASTATIN [Concomitant]
     Dosage: UNK UKN, UNK
  6. GABAPENTIN [Concomitant]
     Dosage: UNK UKN, UNK
  7. VITAMIN D3 [Concomitant]
     Dosage: UNK UKN, UNK
  8. METANX [Concomitant]
     Dosage: UNK UKN, UNK
  9. ACETYL-L-CARNITINE [Concomitant]
     Dosage: UNK UKN, UNK
  10. BENADRYL [Concomitant]
     Dosage: UNK UKN, UNK
  11. COQ10 [Concomitant]
     Dosage: UNK UKN, UNK
  12. ASPIRIN [Concomitant]
     Dosage: UNK UKN, UNK
  13. NIACIN [Concomitant]
     Dosage: UNK UKN, UNK
  14. ALIGN [Concomitant]
     Dosage: UNK UKN, UNK
  15. GLYBURIDE [Concomitant]
     Dosage: UNK UKN, UNK
  16. OXYBUTYNIN [Concomitant]
     Dosage: UNK UKN, UNK
  17. IBUPROFEN [Concomitant]
     Dosage: UNK UKN, UNK
  18. MEGA-VITA [Concomitant]
     Dosage: UNK UKN, UNK
  19. GLUCOSAMINE [Concomitant]
     Dosage: UNK UKN, UNK
  20. IMODIUM [Concomitant]
     Dosage: UNK UKN, UNK
  21. OCEAN NASAL SPRAY [Concomitant]
     Dosage: UNK UKN, UNK
  22. BIOTIN [Concomitant]
     Dosage: UNK UKN, UNK

REACTIONS (3)
  - Myocardial infarction [Unknown]
  - Pain in extremity [Unknown]
  - Memory impairment [Unknown]
